FAERS Safety Report 6835478-7 (Version None)
Quarter: 2010Q3

REPORT INFORMATION
  Report Type: 
  Country: None (occurrence: None)
  Receive Date: 20100713
  Receipt Date: 20100629
  Transmission Date: 20110219
  Serious: Yes (Hospitalization, Other)
  Sender: FDA-Public Use
  Company Number: PHHY2010BR43118

PATIENT
  Age: 91 Year
  Sex: Female

DRUGS (1)
  1. GENTEAL GEL (NVO) [Suspect]
     Indication: VIITH NERVE PARALYSIS
     Dosage: 10MG, UNK

REACTIONS (3)
  - CEREBROVASCULAR ACCIDENT [None]
  - GASTROINTESTINAL INFECTION [None]
  - PLASTIC SURGERY [None]
